FAERS Safety Report 6766323-6 (Version None)
Quarter: 2010Q2

REPORT INFORMATION
  Report Type: 
  Country: None (occurrence: None)
  Receive Date: 20100611
  Receipt Date: 20100603
  Transmission Date: 20101027
  Serious: Yes (Hospitalization, Other)
  Sender: FDA-Public Use
  Company Number: US-AMGEN-QUU399109

PATIENT
  Sex: Female

DRUGS (13)
  1. ENBREL [Suspect]
     Indication: RHEUMATOID ARTHRITIS
     Route: 058
     Dates: start: 20011001
  2. CELEBREX [Concomitant]
     Route: 048
  3. FLECTOR [Concomitant]
     Route: 062
  4. FOLIC ACID [Concomitant]
     Route: 048
  5. MULTI-VITAMINS [Concomitant]
  6. OLOPATADINE [Concomitant]
  7. POTASSIUM [Concomitant]
  8. THEO-DUR [Concomitant]
  9. ULTRAM [Concomitant]
     Route: 048
  10. VENTOLIN [Concomitant]
  11. VITAMIN E [Concomitant]
  12. VOLTAREN [Concomitant]
  13. SIMPONI [Concomitant]
     Dates: start: 20090101, end: 20100101

REACTIONS (39)
  - ARTHRALGIA [None]
  - BONE EROSION [None]
  - BONE MARROW OEDEMA [None]
  - BREAST CANCER [None]
  - BUNION [None]
  - CYSTOPEXY [None]
  - DEPRESSED MOOD [None]
  - DRUG INEFFECTIVE [None]
  - DYSPEPSIA [None]
  - EXOSTOSIS [None]
  - FALL [None]
  - FIBROCYSTIC BREAST DISEASE [None]
  - GASTROOESOPHAGEAL REFLUX DISEASE [None]
  - HEPATITIS C [None]
  - HYPERKERATOSIS [None]
  - HYPOKALAEMIA [None]
  - HYSTERECTOMY [None]
  - INFLAMMATION [None]
  - INSOMNIA [None]
  - JOINT EFFUSION [None]
  - LIPOMA EXCISION [None]
  - MENOPAUSE [None]
  - NASAL SEPTAL OPERATION [None]
  - NEUROMA [None]
  - NODULE ON EXTREMITY [None]
  - OBESITY [None]
  - OSTEOARTHRITIS [None]
  - OSTEOPOROSIS [None]
  - PARAESTHESIA [None]
  - PATELLOFEMORAL PAIN SYNDROME [None]
  - PYREXIA [None]
  - RADICULAR SYNDROME [None]
  - RENAL FAILURE [None]
  - RETROPERITONEAL NEOPLASM [None]
  - RHEUMATOID ARTHRITIS [None]
  - SYNOVITIS [None]
  - TENDON OPERATION [None]
  - TRANSIENT ISCHAEMIC ATTACK [None]
  - TRIGGER FINGER [None]
